FAERS Safety Report 5504873-0 (Version None)
Quarter: 2007Q4

REPORT INFORMATION
  Report Type: 
  Country: None (occurrence: None)
  Receive Date: 20071102
  Receipt Date: 20071022
  Transmission Date: 20080405
  Serious: Yes (Other)
  Sender: FDA-Public Use
  Company Number: PHBS2007VE17679

PATIENT
  Age: 8 Year
  Sex: Female

DRUGS (1)
  1. CATAFLAM [Suspect]
     Indication: PYREXIA
     Dosage: UNK, UNK
     Route: 065
     Dates: start: 20071020, end: 20071020

REACTIONS (1)
  - EPISTAXIS [None]
